FAERS Safety Report 24769707 (Version 1)
Quarter: 2024Q4

REPORT INFORMATION
  Report Type: Report from Study
  Country: KR (occurrence: KR)
  Receive Date: 20241224
  Receipt Date: 20241224
  Transmission Date: 20250115
  Serious: Yes (Other)
  Sender: EMD SERONO INC
  Company Number: KR-Merck Healthcare KGaA-2024066733

PATIENT
  Age: 63 Year
  Sex: Female

DRUGS (1)
  1. REBIF [Suspect]
     Active Substance: INTERFERON BETA-1A
     Indication: Product used for unknown indication

REACTIONS (1)
  - Uterine leiomyoma [Unknown]
